FAERS Safety Report 5326646-4 (Version None)
Quarter: 2007Q2

REPORT INFORMATION
  Report Type: 
  Country: None (occurrence: None)
  Receive Date: 20070516
  Receipt Date: 20070510
  Transmission Date: 20071010
  Serious: Yes (Other)
  Sender: FDA-Public Use
  Company Number: CH-PFIZER INC-2007037936

PATIENT
  Age: 47 Year
  Sex: Female

DRUGS (4)
  1. CHAMPIX [Suspect]
     Indication: SMOKING CESSATION THERAPY
     Route: 048
  2. PRAVASTATIN [Concomitant]
     Dosage: DAILY DOSE:20MG
     Route: 048
  3. PREDNISONE TAB [Concomitant]
     Dosage: DAILY DOSE:20MG
  4. ALL OTHER THERAPEUTIC PRODUCTS [Concomitant]

REACTIONS (4)
  - ARTHRALGIA [None]
  - C-REACTIVE PROTEIN INCREASED [None]
  - MYALGIA [None]
  - RED BLOOD CELL SEDIMENTATION RATE INCREASED [None]
